FAERS Safety Report 19410777 (Version 1)
Quarter: 2021Q2

REPORT INFORMATION
  Report Type: Spontaneous
  Country: US (occurrence: US)
  Receive Date: 20210613
  Receipt Date: 20210613
  Transmission Date: 20210717
  Serious: Yes (Other)
  Sender: FDA-Public Use
  Company Number: None

PATIENT
  Sex: Female
  Weight: 79.38 kg

DRUGS (1)
  1. PARAGARD T 380A [Suspect]
     Active Substance: COPPER

REACTIONS (7)
  - Headache [None]
  - Balance disorder [None]
  - Heart rate increased [None]
  - Dysarthria [None]
  - Visual impairment [None]
  - Nervous system disorder [None]
  - Chest pain [None]

NARRATIVE: CASE EVENT DATE: 20190606
